FAERS Safety Report 23858475 (Version 1)
Quarter: 2024Q2

REPORT INFORMATION
  Report Type: Report from Study
  Country: KR (occurrence: KR)
  Receive Date: 20240515
  Receipt Date: 20240515
  Transmission Date: 20240715
  Serious: Yes (Death, Life-Threatening, Hospitalization, Other)
  Sender: FDA-Public Use
  Company Number: KR-JEIL-2024-511142

PATIENT
  Age: 78 Year
  Sex: Male
  Weight: 56.3 kg

DRUGS (2)
  1. LONSURF [Suspect]
     Active Substance: TIPIRACIL HYDROCHLORIDE\TRIFLURIDINE
     Indication: Metastatic gastric cancer
     Dosage: DAILY DOSE 110 MG
     Route: 050
     Dates: start: 20240405, end: 20240409
  2. LONSURF [Suspect]
     Active Substance: TIPIRACIL HYDROCHLORIDE\TRIFLURIDINE
     Dosage: DAILY DOSE 110 MG
     Route: 050
     Dates: start: 20240412, end: 20240416

REACTIONS (2)
  - Septic shock [Fatal]
  - Cardiac arrest [Recovered/Resolved]

NARRATIVE: CASE EVENT DATE: 20240422
